FAERS Safety Report 7152031-9 (Version None)
Quarter: 2010Q4

REPORT INFORMATION
  Report Type: 
  Country: None (occurrence: None)
  Receive Date: 20101123
  Receipt Date: 20101102
  Transmission Date: 20110411
  Serious: Yes (Other)
  Sender: FDA-Public Use
  Company Number: GR-021382

PATIENT
  Age: 36 Year
  Sex: Female

DRUGS (5)
  1. (CHLORAMBUCIL) [Suspect]
     Indication: CHRONIC LYMPHOCYTIC LEUKAEMIA
     Dosage: 10MG/M2 AT DAYS 1-7 EVERY 28 DAYS, ORAL
     Route: 048
     Dates: start: 20100930
  2. (FILGRASTIM) [Concomitant]
  3. LEVOFLOXACIN [Concomitant]
  4. (PARACETAMOL) [Concomitant]
  5. (IMMUNOGIOBULINS) [Concomitant]

REACTIONS (2)
  - FEBRILE NEUTROPENIA [None]
  - INFLUENZA LIKE ILLNESS [None]
